FAERS Safety Report 15472506 (Version 2)
Quarter: 2018Q4

REPORT INFORMATION
  Report Type: Spontaneous
  Country: US (occurrence: US)
  Receive Date: 20181008
  Receipt Date: 20181101
  Transmission Date: 20190205
  Serious: No
  Sender: FDA-Public Use
  Company Number: US-ASTRAZENECA-2018SF28526

PATIENT
  Age: 25132 Day
  Sex: Female

DRUGS (1)
  1. FASENRA [Suspect]
     Active Substance: BENRALIZUMAB
     Indication: ASTHMA
     Dosage: 30 MG SQ EVERY 4 WEEKS FOR FIRST 3 INJECTIONS AND THEN EVERY 8 WEEKS THEREAFTER
     Route: 058
     Dates: start: 20180925

REACTIONS (5)
  - Vertigo [Unknown]
  - Feeling drunk [Unknown]
  - Musculoskeletal stiffness [Unknown]
  - Diarrhoea [Unknown]
  - Vomiting [Unknown]

NARRATIVE: CASE EVENT DATE: 20180925
